FAERS Safety Report 5360482-8 (Version None)
Quarter: 2007Q2

REPORT INFORMATION
  Report Type: 
  Country: None (occurrence: None)
  Receive Date: 20070618
  Receipt Date: 20070612
  Transmission Date: 20071010
  Serious: Yes (Hospitalization)
  Sender: FDA-Public Use
  Company Number: B0324856B

PATIENT
  Age: 65 Year
  Sex: Male
  Weight: 93.1 kg

DRUGS (8)
  1. ROSIGLITAZONE [Suspect]
     Route: 048
     Dates: start: 20030204
  2. EUGLUCON [Concomitant]
     Route: 048
     Dates: start: 19950901
  3. CITODON [Concomitant]
     Dates: start: 20000101
  4. LANSOPRAZOLE [Concomitant]
     Route: 048
  5. SIMVASTATIN [Concomitant]
     Dosage: 20MG PER DAY
     Route: 048
     Dates: start: 20030820
  6. VIOXX [Concomitant]
     Dosage: 25MG PER DAY
     Route: 048
     Dates: start: 20031007
  7. ATARAX [Concomitant]
     Dosage: 10MG PER DAY
     Route: 048
     Dates: start: 20041016
  8. NEURONTIN [Concomitant]
     Dosage: 900MG PER DAY
     Route: 048
     Dates: start: 20050209

REACTIONS (2)
  - HYPERTENSION [None]
  - HYPOGLYCAEMIA [None]
